FAERS Safety Report 15561392 (Version 2)
Quarter: 2018Q4

REPORT INFORMATION
  Report Type: Spontaneous
  Country: US (occurrence: US)
  Receive Date: 20181029
  Receipt Date: 20181119
  Transmission Date: 20190205
  Serious: Yes (Hospitalization, Other)
  Sender: FDA-Public Use
  Company Number: US-PFIZER INC-2018430544

PATIENT
  Age: 75 Year
  Sex: Male
  Weight: 105.8 kg

DRUGS (1)
  1. LYRICA [Suspect]
     Active Substance: PREGABALIN
     Dosage: 100 MG, 3X/DAY
     Route: 048

REACTIONS (3)
  - Diabetes mellitus inadequate control [Unknown]
  - Hyperkalaemia [Unknown]
  - Chronic kidney disease [Unknown]
